FAERS Safety Report 4960074-6 (Version None)
Quarter: 2006Q1

REPORT INFORMATION
  Report Type: 
  Country: None (occurrence: None)
  Receive Date: 20060331
  Receipt Date: 20050928
  Transmission Date: 20060701
  Serious: Yes (Hospitalization)
  Sender: FDA-Public Use
  Company Number: US-MERCK-0509USA04537

PATIENT
  Age: 80 Year
  Sex: Female

DRUGS (1)
  1. VIOXX [Suspect]
     Route: 048

REACTIONS (4)
  - AORTIC ARTERIOSCLEROSIS [None]
  - ENTEROCOCCAL INFECTION [None]
  - ISCHAEMIC CEREBRAL INFARCTION [None]
  - MYOCARDIAL INFARCTION [None]
